FAERS Safety Report 5341279-1 (Version None)
Quarter: 2007Q2

REPORT INFORMATION
  Report Type: 
  Country: None (occurrence: None)
  Receive Date: 20070404
  Receipt Date: 20070124
  Transmission Date: 20071010
  Serious: Yes (Other)
  Sender: FDA-Public Use
  Company Number: 2007006690

PATIENT
  Age: 25 Year
  Sex: Male

DRUGS (3)
  1. GEODON [Suspect]
     Indication: AGGRESSION
     Dosage: (40 MG)
  2. FLUOXETINE [Suspect]
     Indication: AGGRESSION
     Dosage: (20 MG)
  3. PROVIGIL [Suspect]
     Indication: AGGRESSION

REACTIONS (1)
  - TARDIVE DYSKINESIA [None]
